FAERS Safety Report 9725775 (Version 4)
Quarter: 2014Q1

REPORT INFORMATION
  Report Type: Spontaneous
  Country: US (occurrence: US)
  Receive Date: 20131203
  Receipt Date: 20140228
  Transmission Date: 20141002
  Serious: Yes (Congenital Anomaly, Other)
  Sender: FDA-Public Use
  Company Number: US-JNJFOC-20131200056

PATIENT
  Sex: Male

DRUGS (2)
  1. TOPAMAX [Suspect]
     Indication: EPILEPSY
     Dosage: MOTHER^S DOSING
     Route: 064
     Dates: start: 200508, end: 200609
  2. BIRTH CONTROL PILLS [Suspect]
     Indication: PRODUCT USED FOR UNKNOWN INDICATION
     Dosage: MOTHER DOSING
     Route: 064

REACTIONS (6)
  - Schizencephaly [Unknown]
  - Hydrocephalus [Unknown]
  - Convulsion [Unknown]
  - Foetal exposure during pregnancy [Unknown]
  - Septo-optic dysplasia [Unknown]
  - Developmental delay [Unknown]
